FAERS Safety Report 5150427-8 (Version None)
Quarter: 2006Q4

REPORT INFORMATION
  Report Type: 
  Country: None (occurrence: None)
  Receive Date: 20061109
  Receipt Date: 20061109
  Transmission Date: 20070319
  Serious: No
  Sender: FDA-Public Use
  Company Number: None

PATIENT
  Age: 46 Year
  Sex: Male
  Weight: 63.5036 kg

DRUGS (1)
  1. LEVAQUIN [Suspect]
     Indication: PROSTATITIS
     Dosage: 500 MG ONCE DAILY PO
     Route: 048
     Dates: start: 20061103, end: 20061104

REACTIONS (3)
  - ARTHRALGIA [None]
  - PAIN [None]
  - TENDON DISORDER [None]
